FAERS Safety Report 8065469-2 (Version None)
Quarter: 2011Q4

REPORT INFORMATION
  Report Type: 
  Country: None (occurrence: None)
  Receive Date: 20111221
  Receipt Date: 20110531
  Transmission Date: 20120403
  Serious: Yes (Hospitalization)
  Sender: FDA-Public Use
  Company Number: PHHY2011US40592

PATIENT
  Age: 9 Year
  Sex: Female

DRUGS (3)
  1. FOLIC ACID [Concomitant]
  2. EXJADE [Suspect]
     Indication: THALASSAEMIA
     Dosage: 500 MG, QD, ORAL
     Route: 048
  3. ZITHROMAX [Concomitant]

REACTIONS (2)
  - PYREXIA [None]
  - SNEEZING [None]
